FAERS Safety Report 12194028 (Version 1)
Quarter: 2016Q1

REPORT INFORMATION
  Report Type: Spontaneous
  Country: CZ (occurrence: CZ)
  Receive Date: 20160321
  Receipt Date: 20160321
  Transmission Date: 20160526
  Serious: Yes (Hospitalization)
  Sender: FDA-Public Use
  Company Number: CZ-ACCORD-038665

PATIENT
  Age: 40 Year
  Sex: Male
  Weight: 110 kg

DRUGS (6)
  1. ALPRAZOLAM. [Suspect]
     Active Substance: ALPRAZOLAM
     Indication: PSYCHOTHERAPY
     Dosage: 1 MG ADMINISTERED AFTER ADMISSION IN CASE OF ANXIETY.
  2. CLONAZEPAM. [Suspect]
     Active Substance: CLONAZEPAM
     Indication: PSYCHOTHERAPY
     Dosage: AFTER ADMISSION, RECEIVED 4 MG, 3 TIMES DAILY FOR FIRST 08 DAYS AND THEN TAPER OFF 2 MG/2-3 DAYS.
  3. BETAXOLOL. [Concomitant]
     Active Substance: BETAXOLOL
  4. GABAPENTIN. [Concomitant]
     Active Substance: GABAPENTIN
     Dosage: LATER DOSE INCRESED TO 900 MG, 3 TIMES DAILY
  5. SULPIRIDE [Concomitant]
     Active Substance: SULPIRIDE
     Dosage: DOSE: 50 MG 1 TO 3 TIMES DAILY
  6. CITALOPRAM [Concomitant]
     Active Substance: CITALOPRAM HYDROBROMIDE

REACTIONS (7)
  - Tension [Recovered/Resolved]
  - Headache [Recovered/Resolved]
  - Insomnia [Recovered/Resolved]
  - Drug dependence [Unknown]
  - Disinhibition [Unknown]
  - Drug withdrawal syndrome [Recovered/Resolved]
  - Toxicity to various agents [Unknown]
